FAERS Safety Report 8461348-7 (Version None)
Quarter: 2012Q2

REPORT INFORMATION
  Report Type: 
  Country: None (occurrence: None)
  Receive Date: 20120620
  Receipt Date: 20120620
  Transmission Date: 20120825
  Serious: Yes (Disabling)
  Sender: FDA-Public Use
  Company Number: None

PATIENT
  Age: 56 Year
  Sex: Male
  Weight: 95.2554 kg

DRUGS (1)
  1. OXYBUTYNIN [Suspect]
     Indication: INCONTINENCE
     Dosage: 1 DAY
     Dates: start: 20120312, end: 20120612

REACTIONS (1)
  - PEYRONIE'S DISEASE [None]
